FAERS Safety Report 10238248 (Version 1)
Quarter: 2014Q2

REPORT INFORMATION
  Report Type: Spontaneous
  Country: US (occurrence: US)
  Receive Date: 20140616
  Receipt Date: 20140616
  Transmission Date: 20141212
  Serious: No
  Sender: FDA-Public Use
  Company Number: US-PFIZER INC-2014164175

PATIENT
  Sex: Female

DRUGS (2)
  1. NEURONTIN [Suspect]
     Indication: INTERVERTEBRAL DISC DEGENERATION
     Dosage: UNK
  2. NEURONTIN [Suspect]
     Indication: NERVE COMPRESSION

REACTIONS (1)
  - Restlessness [Unknown]
